FAERS Safety Report 5865739-X (Version None)
Quarter: 2008Q3

REPORT INFORMATION
  Report Type: 
  Country: None (occurrence: None)
  Receive Date: 20080829
  Receipt Date: 20080821
  Transmission Date: 20090109
  Serious: Yes (Other)
  Sender: FDA-Public Use
  Company Number: PHEH2008US07371

PATIENT
  Sex: Female

DRUGS (1)
  1. GLEEVEC [Suspect]
     Dosage: UNK
     Route: 048
     Dates: start: 20010101

REACTIONS (3)
  - CONVULSION [None]
  - OPTIC NERVE INJURY [None]
  - UNEVALUABLE EVENT [None]
